FAERS Safety Report 18253296 (Version 1)
Quarter: 2020Q3

REPORT INFORMATION
  Report Type: Spontaneous
  Country: US (occurrence: US)
  Receive Date: 20200910
  Receipt Date: 20200910
  Transmission Date: 20201103
  Serious: No
  Sender: FDA-Public Use
  Company Number: US-PFIZER INC-2020347940

PATIENT
  Age: 80 Year
  Sex: Female

DRUGS (1)
  1. PREMARIN [Suspect]
     Active Substance: ESTROGENS, CONJUGATED
     Dosage: 0.5 G, ALTERNATE DAY (0.5 GRAM EVERY OTHER DAY)
     Route: 067
     Dates: start: 20200828

REACTIONS (5)
  - Feeling abnormal [Unknown]
  - Blood glucose decreased [Unknown]
  - Anxiety [Unknown]
  - Stress [Unknown]
  - Tremor [Unknown]
